FAERS Safety Report 10042497 (Version 2)
Quarter: 2014Q2

REPORT INFORMATION
  Report Type: Spontaneous
  Country: FR (occurrence: FR)
  Receive Date: 20140327
  Receipt Date: 20140408
  Transmission Date: 20141212
  Serious: Yes (Hospitalization)
  Sender: FDA-Public Use
  Company Number: FR-FRI-1000065803

PATIENT
  Age: 52 Year
  Sex: Female

DRUGS (8)
  1. MILNACIPRAN [Suspect]
     Indication: DEPRESSION
     Route: 048
     Dates: start: 20140128
  2. MILNACIPRAN [Suspect]
     Indication: DEPRESSION
     Dosage: 200 MG
     Route: 048
  3. MILNACIPRAN [Suspect]
     Dosage: 150 MG
     Dates: end: 20140214
  4. DEPAKOTE [Concomitant]
  5. ATARAX [Concomitant]
  6. VALIUM [Concomitant]
  7. PLAVIX [Concomitant]
  8. KARDEGIC [Concomitant]

REACTIONS (3)
  - Hypertension [Recovered/Resolved]
  - Hyperammonaemia [Unknown]
  - Prescribed overdose [Recovered/Resolved]
